FAERS Safety Report 5495741-1 (Version None)
Quarter: 2007Q4

REPORT INFORMATION
  Report Type: 
  Country: None (occurrence: None)
  Receive Date: 20071025
  Receipt Date: 20061012
  Transmission Date: 20080405
  Serious: No
  Sender: FDA-Public Use
  Company Number: A0623396A

PATIENT
  Age: 66 Year
  Sex: Female

DRUGS (7)
  1. ADVAIR DISKUS 100/50 [Suspect]
     Indication: ASTHMA
     Dosage: 1PUFF TWICE PER DAY
     Route: 055
     Dates: start: 20051201
  2. SPIRIVA [Concomitant]
  3. LIPITOR [Concomitant]
  4. EVISTA [Concomitant]
  5. ZOLOFT [Concomitant]
  6. ASPIRIN [Concomitant]
  7. CORTISONE ACETATE [Concomitant]

REACTIONS (3)
  - CANDIDIASIS [None]
  - DYSPHONIA [None]
  - RASH [None]
